FAERS Safety Report 12950973 (Version 2)
Quarter: 2016Q4

REPORT INFORMATION
  Report Type: Spontaneous
  Country: US (occurrence: US)
  Receive Date: 20161117
  Receipt Date: 20161124
  Transmission Date: 20170207
  Serious: Yes (Hospitalization)
  Sender: FDA-Public Use
  Company Number: US-HORIZON-RAV-0245-2016

PATIENT
  Age: 4 Year
  Sex: Male

DRUGS (2)
  1. ARGININE [Concomitant]
     Active Substance: ARGININE
  2. RAVICTI [Suspect]
     Active Substance: GLYCEROL PHENYLBUTYRATE
     Indication: ARGININOSUCCINATE LYASE DEFICIENCY

REACTIONS (2)
  - Viral infection [Recovered/Resolved]
  - Hyperammonaemic crisis [Recovered/Resolved]
